FAERS Safety Report 4485104-X (Version None)
Quarter: 2004Q4

REPORT INFORMATION
  Report Type: 
  Country: None (occurrence: None)
  Receive Date: 20041026
  Receipt Date: 20031010
  Transmission Date: 20050328
  Serious: Yes (Other)
  Sender: FDA-Public Use
  Company Number: US-BRISTOL-MYERS SQUIBB COMPANY-12408647

PATIENT
  Age: 69 Year
  Sex: Female
  Weight: 109 kg

DRUGS (2)
  1. GLUCOPHAGE XR [Suspect]
     Route: 048
     Dates: start: 20030926
  2. AVANDIA [Concomitant]

REACTIONS (3)
  - ABDOMINAL PAIN UPPER [None]
  - BLOOD GLUCOSE INCREASED [None]
  - NERVOUSNESS [None]
